FAERS Safety Report 8252352-2 (Version None)
Quarter: 2012Q2

REPORT INFORMATION
  Report Type: 
  Country: None (occurrence: None)
  Receive Date: 20120402
  Receipt Date: 20110524
  Transmission Date: 20120825
  Serious: No
  Sender: FDA-Public Use
  Company Number: US-ABBOTT-11P-163-0804607-00

PATIENT
  Sex: Male

DRUGS (3)
  1. TESTOSTERONE [Suspect]
     Indication: BLOOD TESTOSTERONE DECREASED
     Dosage: DAILY DOSE:  UNKNOWN
     Route: 062
     Dates: start: 20110401
  2. GLUCOSAMINE [Concomitant]
     Indication: SUPPLEMENTATION THERAPY
     Dosage: DAILY DOSE:  UNKNOWN
     Route: 065
  3. ACETYLSALICYLIC ACID [Concomitant]
     Indication: PROPHYLAXIS
     Dosage: DAILY DOSE:  UNKNOWN; AS USED: 81 MILLIGRAM (S)
     Route: 065

REACTIONS (2)
  - OCULAR HYPERAEMIA [None]
  - EYE SWELLING [None]
